FAERS Safety Report 9172010 (Version 2)
Quarter: 2013Q2

REPORT INFORMATION
  Report Type: Spontaneous
  Country: US (occurrence: US)
  Receive Date: 20130319
  Receipt Date: 20130405
  Transmission Date: 20140414
  Serious: Yes (Hospitalization)
  Sender: FDA-Public Use
  Company Number: US-PFIZER INC-2013091028

PATIENT
  Age: 63 Year
  Sex: Male
  Weight: 90.7 kg

DRUGS (15)
  1. LYRICA [Suspect]
     Indication: PAIN IN EXTREMITY
     Dosage: 150 MG, 2X/DAY
  2. LYRICA [Suspect]
     Indication: ARTHRALGIA
  3. NIACIN [Concomitant]
     Indication: SUPPLEMENTATION THERAPY
     Dosage: UNK
  4. ASPIRIN [Concomitant]
     Dosage: UNK
  5. AMLODIPINE [Concomitant]
     Indication: HYPERTENSION
     Dosage: 5 MG, 1X/DAY
  6. COUMADIN [Concomitant]
     Indication: ANTICOAGULANT THERAPY
     Dosage: 25 MG, 1X/DAY
  7. LASIX [Concomitant]
     Indication: CARDIAC FAILURE CONGESTIVE
     Dosage: 40 MG, 1X/DAY
  8. OMEPRAZOLE [Concomitant]
     Dosage: 40 MG, 1X/DAY
  9. ISOSORBIDE [Concomitant]
     Indication: CARDIAC DISORDER
     Dosage: 30 MG, 1X/DAY
  10. RYTHMOL [Concomitant]
     Indication: ARRHYTHMIA
     Dosage: 225 MG, 1X/DAY
  11. TOPROL XL [Concomitant]
     Indication: HYPERTENSION
     Dosage: 50 MG, 1X/DAY
  12. TOPROL XL [Concomitant]
     Indication: ARRHYTHMIA
  13. PRAVACHOL [Concomitant]
     Indication: CARDIAC DISORDER
     Dosage: 20 MG, 1X/DAY
  14. METFORMIN [Concomitant]
     Indication: DIABETES MELLITUS
     Dosage: 500 MG, 1X/DAY
  15. VITAMIN D [Concomitant]
     Indication: SUPPLEMENTATION THERAPY
     Dosage: UNK

REACTIONS (1)
  - Arthropathy [Unknown]
